FAERS Safety Report 20150787 (Version 1)
Quarter: 2021Q4

REPORT INFORMATION
  Report Type: Report from Study
  Country: BR (occurrence: BR)
  Receive Date: 20211206
  Receipt Date: 20211206
  Transmission Date: 20220303
  Serious: Yes (Other)
  Sender: FDA-Public Use
  Company Number: BR-NOVARTISPH-NVSC2021BR276413

PATIENT
  Sex: Female

DRUGS (1)
  1. OMNITROPE [Suspect]
     Active Substance: SOMATROPIN
     Indication: Product used for unknown indication
     Dosage: STOPPED ABOUT A MONTH AGO
     Route: 065
     Dates: start: 201901

REACTIONS (2)
  - Intentional self-injury [Recovered/Resolved]
  - Depression [Not Recovered/Not Resolved]
